FAERS Safety Report 8561224-5 (Version None)
Quarter: 2012Q3

REPORT INFORMATION
  Report Type: 
  Country: None (occurrence: None)
  Receive Date: 20120723
  Receipt Date: 20120709
  Transmission Date: 20120928
  Serious: Yes (Hospitalization)
  Sender: FDA-Public Use
  Company Number: ACO_25964_2004

PATIENT
  Age: 70 Year
  Sex: Female
  Weight: 54.7 kg

DRUGS (10)
  1. TIZANIDINE HYDROCHLORIDE [Suspect]
     Indication: PAIN IN EXTREMITY
     Dosage: 3 MG, QD, ORAL
     Route: 048
  2. CANDESARTAN CILEXETIL [Concomitant]
  3. FAMOTIDINE [Concomitant]
  4. BEZAFIBRATE (BEZAFIBRATE) [Concomitant]
  5. TICLOPIDINE HYDROCHLORIDE [Concomitant]
  6. ZOPICLONE (ZOPICLONE) [Concomitant]
  7. FLUVOXAMINE MALEATE [Suspect]
     Indication: DEPRESSION
     Dosage: 50 MG, QD ; 100 MG, QD ; 150 MG, QD, ORAL
     Route: 048
  8. BENIDIPINE (BENIDIPINE) [Concomitant]
  9. CARBAMAZEPINE [Concomitant]
  10. FLUNITRAZEPAM (FLUNITRAZEPAM) [Concomitant]

REACTIONS (12)
  - TENSION [None]
  - ANURIA [None]
  - BODY TEMPERATURE DECREASED [None]
  - URINARY RETENTION [None]
  - PAIN IN EXTREMITY [None]
  - HEART RATE DECREASED [None]
  - DEPRESSIVE SYMPTOM [None]
  - THIRST [None]
  - DRUG INTERACTION [None]
  - DYSURIA [None]
  - DRY MOUTH [None]
  - CONDITION AGGRAVATED [None]
